FAERS Safety Report 21148859 (Version 1)
Quarter: 2022Q3

REPORT INFORMATION
  Report Type: Spontaneous
  Country: US (occurrence: US)
  Receive Date: 20220729
  Receipt Date: 20220729
  Transmission Date: 20221027
  Serious: Yes (Hospitalization)
  Sender: FDA-Public Use
  Company Number: US-STRIDES ARCOLAB LIMITED-2022SP009566

PATIENT
  Age: 5 Decade
  Sex: Female

DRUGS (2)
  1. ERGOCALCIFEROL [Suspect]
     Active Substance: ERGOCALCIFEROL
     Indication: Vitamin supplementation
     Dosage: 50000 UNITS PER DAY
     Route: 065
  2. CHLORTHALIDONE [Suspect]
     Active Substance: CHLORTHALIDONE
     Indication: Product used for unknown indication
     Dosage: 25 MILLIGRAM DAILY
     Route: 048

REACTIONS (3)
  - Calciphylaxis [Recovered/Resolved]
  - Disease recurrence [Recovered/Resolved]
  - Hypervitaminosis [Recovered/Resolved]
